FAERS Safety Report 7549746-7 (Version None)
Quarter: 2011Q2

REPORT INFORMATION
  Report Type: 
  Country: None (occurrence: None)
  Receive Date: 20110615
  Receipt Date: 20060406
  Transmission Date: 20111010
  Serious: Yes (Other)
  Sender: FDA-Public Use
  Company Number: PHFR2006GB01150

PATIENT
  Sex: Female

DRUGS (3)
  1. FLUOXETINE HCL [Suspect]
     Dosage: 20 MG, QD
     Route: 048
  2. CLOZAPINE [Suspect]
     Dosage: 400 MG, QD
     Route: 048
  3. CLOZAPINE [Suspect]
     Indication: SCHIZOPHRENIA
     Dosage: 500 MG, QD
     Route: 048
     Dates: start: 19941012

REACTIONS (5)
  - AMNESIA [None]
  - FALL [None]
  - TREMOR [None]
  - ELECTROENCEPHALOGRAM ABNORMAL [None]
  - CONFUSIONAL STATE [None]
